FAERS Safety Report 17141163 (Version 30)
Quarter: 2024Q4

REPORT INFORMATION
  Report Type: Report from Study
  Country: DE (occurrence: DE)
  Receive Date: 20191211
  Receipt Date: 20241225
  Transmission Date: 20250114
  Serious: Yes (Hospitalization, Other)
  Sender: ROCHE
  Company Number: DE-ROCHE-2484360

PATIENT
  Age: 79 Year
  Sex: Female

DRUGS (14)
  1. OCREVUS [Suspect]
     Active Substance: OCRELIZUMAB
     Indication: Secondary progressive multiple sclerosis
     Route: 042
     Dates: start: 20191024
  2. OCREVUS [Suspect]
     Active Substance: OCRELIZUMAB
     Indication: Primary progressive multiple sclerosis
     Route: 042
     Dates: start: 20191106
  3. OCREVUS [Suspect]
     Active Substance: OCRELIZUMAB
     Route: 042
     Dates: start: 202005
  4. OCREVUS [Suspect]
     Active Substance: OCRELIZUMAB
     Route: 042
     Dates: start: 20210216
  5. NALOXONE HYDROCHLORIDE\OXYCODONE HYDROCHLORIDE [Concomitant]
     Active Substance: NALOXONE HYDROCHLORIDE\OXYCODONE HYDROCHLORIDE
     Indication: Pain
  6. ATENOLOL [Concomitant]
     Active Substance: ATENOLOL
     Indication: Hypertension
  7. LERCANIDIPINE HYDROCHLORIDE [Concomitant]
     Active Substance: LERCANIDIPINE HYDROCHLORIDE
     Indication: Hypertension
  8. CORTISONE [Concomitant]
     Active Substance: CORTISONE
  9. DICLOFENAC SODIUM\MISOPROSTOL [Concomitant]
     Active Substance: DICLOFENAC SODIUM\MISOPROSTOL
  10. METOPROLOL [Concomitant]
     Active Substance: METOPROLOL
  11. ALDACTONE [Concomitant]
     Active Substance: SPIRONOLACTONE
  12. COMIRNATY [Concomitant]
     Indication: COVID-19 prophylaxis
     Dates: start: 20210501
  13. PROLIA [Concomitant]
     Active Substance: DENOSUMAB
  14. ARTHROTEC [Concomitant]
     Active Substance: DICLOFENAC SODIUM\MISOPROSTOL

REACTIONS (30)
  - Incontinence [Recovering/Resolving]
  - Gait disturbance [Not Recovered/Not Resolved]
  - Skin abrasion [Not Recovered/Not Resolved]
  - Small intestinal obstruction [Recovered/Resolved]
  - Muscle spasms [Recovered/Resolved]
  - Drug ineffective [Unknown]
  - Oral herpes [Recovered/Resolved]
  - Diarrhoea [Recovered/Resolved]
  - Nasal congestion [Recovered/Resolved]
  - Blood pressure increased [Recovered/Resolved]
  - Cough [Recovering/Resolving]
  - Fall [Unknown]
  - Blood test abnormal [Recovered/Resolved]
  - Lymphocyte count decreased [Recovered/Resolved]
  - Incisional hernia [Recovered/Resolved]
  - Pain [Recovering/Resolving]
  - Sensory disturbance [Not Recovered/Not Resolved]
  - Blood creatinine increased [Recovered/Resolved]
  - Glomerular filtration rate decreased [Recovered/Resolved]
  - Bladder mass [Recovered/Resolved]
  - Atonic urinary bladder [Recovering/Resolving]
  - Dysstasia [Not Recovered/Not Resolved]
  - Decubitus ulcer [Recovered/Resolved]
  - Fatigue [Recovered/Resolved]
  - Wound [Not Recovered/Not Resolved]
  - Hypotension [Recovered/Resolved]
  - Gastrointestinal perforation [Not Recovered/Not Resolved]
  - Herpes zoster [Recovered/Resolved]
  - Enterocele [Not Recovered/Not Resolved]
  - Incontinence [Recovering/Resolving]

NARRATIVE: CASE EVENT DATE: 20191024
